FAERS Safety Report 7880692-5 (Version None)
Quarter: 2011Q4

REPORT INFORMATION
  Report Type: 
  Country: None (occurrence: None)
  Receive Date: 20111101
  Receipt Date: 20111024
  Transmission Date: 20120403
  Serious: Yes (Other)
  Sender: FDA-Public Use
  Company Number: ES-ELI_LILLY_AND_COMPANY-ES201110007945

PATIENT
  Age: 52 Year
  Sex: Male

DRUGS (1)
  1. GEMCITABINE HYDROCHLORIDE [Suspect]
     Indication: T-CELL LYMPHOMA
     Dosage: UNK, UNKNOWN

REACTIONS (3)
  - RECALL PHENOMENON [None]
  - RADIATION SKIN INJURY [None]
  - ALTERNARIA INFECTION [None]
